FAERS Safety Report 5545261-0 (Version None)
Quarter: 2007Q4

REPORT INFORMATION
  Report Type: 
  Country: None (occurrence: None)
  Receive Date: 20071211
  Receipt Date: 20071129
  Transmission Date: 20080405
  Serious: Yes (Other)
  Sender: FDA-Public Use
  Company Number: PHHY2007BR00691

PATIENT
  Age: 74 Year
  Sex: Female

DRUGS (1)
  1. GALVUS MET [Suspect]
     Indication: DIABETES MELLITUS
     Dosage: 3 TABLETS / DAY
     Route: 048
     Dates: start: 20070920, end: 20071018

REACTIONS (8)
  - ABDOMINAL PAIN [None]
  - ANOREXIA [None]
  - CONSTIPATION [None]
  - GAIT DISTURBANCE [None]
  - GASTRIC LAVAGE [None]
  - HYPERGLYCAEMIA [None]
  - MOANING [None]
  - WEIGHT DECREASED [None]
